FAERS Safety Report 12309874 (Version 1)
Quarter: 2016Q2

REPORT INFORMATION
  Report Type: Spontaneous
  Country: US (occurrence: US)
  Receive Date: 20160427
  Receipt Date: 20160427
  Transmission Date: 20160815
  Serious: No
  Sender: FDA-Public Use
  Company Number: US-WATSON-2015-16183

PATIENT

DRUGS (1)
  1. CARISOPRODOL (WATSON LABORATORIES) [Suspect]
     Active Substance: CARISOPRODOL
     Indication: MUSCLE SPASTICITY
     Dosage: 350 MG, UNK
     Route: 048
     Dates: start: 20150626

REACTIONS (1)
  - Drug ineffective [Not Recovered/Not Resolved]
